FAERS Safety Report 9229471 (Version 1)
Quarter: 2013Q2

REPORT INFORMATION
  Report Type: Report from Study
  Country: CN (occurrence: CN)
  Receive Date: 20130412
  Receipt Date: 20130412
  Transmission Date: 20140414
  Serious: Yes (Hospitalization)
  Sender: FDA-Public Use
  Company Number: CN-B.I. PHARMACEUTICALS,INC./RIDGEFIELD-2013-BI-09163BI

PATIENT
  Sex: Female
  Weight: 67 kg

DRUGS (2)
  1. BIBW 2992 (AFATINIB) [Suspect]
     Indication: BREAST CANCER METASTATIC
     Dosage: 40 MG
     Route: 048
     Dates: start: 20130320, end: 20130402
  2. VINORELBINE [Suspect]
     Indication: BREAST CANCER METASTATIC
     Dosage: 43 MG
     Route: 042
     Dates: start: 20130320, end: 20130327

REACTIONS (1)
  - Neutropenia [Not Recovered/Not Resolved]
